FAERS Safety Report 7007076-6 (Version None)
Quarter: 2010Q3

REPORT INFORMATION
  Report Type: 
  Country: None (occurrence: None)
  Receive Date: 20100920
  Receipt Date: 20100914
  Transmission Date: 20110219
  Serious: Yes (Hospitalization)
  Sender: FDA-Public Use
  Company Number: DSA_43935_2010

PATIENT
  Sex: Female

DRUGS (2)
  1. XENAZINE [Suspect]
     Indication: HUNTINGTON'S DISEASE
     Dosage: 25 MG BID ORAL, DF ORAL
     Route: 048
     Dates: start: 20100101, end: 20100808
  2. XENAZINE [Suspect]
     Indication: HUNTINGTON'S DISEASE
     Dosage: 25 MG BID ORAL, DF ORAL
     Route: 048
     Dates: start: 20100701

REACTIONS (3)
  - ERYTHEMA MULTIFORME [None]
  - LIP SWELLING [None]
  - PHARYNGEAL OEDEMA [None]
